FAERS Safety Report 16907853 (Version 2)
Quarter: 2019Q4

REPORT INFORMATION
  Report Type: Spontaneous
  Country: GB (occurrence: GB)
  Receive Date: 20191011
  Receipt Date: 20191016
  Transmission Date: 20200122
  Serious: Yes (Death, Other)
  Sender: FDA-Public Use
  Company Number: GB-AMGEN-GBRSP2019166509

PATIENT
  Age: 54 Year
  Sex: Male

DRUGS (4)
  1. FLUOROURACIL. [Concomitant]
     Active Substance: FLUOROURACIL
     Dosage: UNK
  2. PANITUMUMAB [Suspect]
     Active Substance: PANITUMUMAB
     Indication: COLORECTAL CANCER
     Dosage: UNK
     Route: 042
  3. FOLINIC ACID [Concomitant]
     Active Substance: LEUCOVORIN
  4. OXALIPLATIN. [Concomitant]
     Active Substance: OXALIPLATIN

REACTIONS (3)
  - Hypoxia [Fatal]
  - Condition aggravated [Fatal]
  - Interstitial lung disease [Fatal]
